FAERS Safety Report 5740536-4 (Version None)
Quarter: 2008Q2

REPORT INFORMATION
  Report Type: 
  Country: None (occurrence: None)
  Receive Date: 20080516
  Receipt Date: 20080505
  Transmission Date: 20081010
  Serious: Yes (Other)
  Sender: FDA-Public Use
  Company Number: CN-JNJFOC-20080500774

PATIENT
  Age: 57 Year
  Sex: Female

DRUGS (1)
  1. NIZORAL [Suspect]
     Indication: TINEA INFECTION
     Route: 048

REACTIONS (5)
  - ASTHENIA [None]
  - DYSPEPSIA [None]
  - NAUSEA [None]
  - OCULAR ICTERUS [None]
  - VOMITING [None]
